FAERS Safety Report 13702532 (Version 1)
Quarter: 2017Q2

REPORT INFORMATION
  Report Type: Spontaneous
  Country: US (occurrence: US)
  Receive Date: 20170629
  Receipt Date: 20170629
  Transmission Date: 20170830
  Serious: No
  Sender: FDA-Public Use
  Company Number: US-ASTRAZENECA-2017SE67179

PATIENT

DRUGS (1)
  1. SEROQUEL XR [Suspect]
     Active Substance: QUETIAPINE FUMARATE
     Dosage: TITRATING FROM 200MG UP TO 400MG OF SEREQUEL XR
     Route: 048

REACTIONS (4)
  - Muscle spasms [Unknown]
  - Myalgia [Unknown]
  - Sleep disorder [Unknown]
  - Weight increased [Unknown]
